FAERS Safety Report 4488732-0 (Version None)
Quarter: 2004Q4

REPORT INFORMATION
  Report Type: 
  Country: None (occurrence: None)
  Receive Date: 20041025
  Receipt Date: 20041007
  Transmission Date: 20050328
  Serious: Yes (Life-Threatening, Hospitalization)
  Sender: FDA-Public Use
  Company Number: 2004072648

PATIENT
  Age: 76 Year
  Sex: Female

DRUGS (4)
  1. ZELDOX (CAPSULES) (ZIPRASIDONE) [Suspect]
     Indication: DELUSIONAL DISORDER, UNSPECIFIED TYPE
     Dosage: 80 MG, ORAL
     Route: 048
     Dates: start: 20030501
  2. CLOPAZINE (CLOPAZINE) [Suspect]
     Indication: TARDIVE DYSKINESIA
     Dosage: 12.5 MG
     Dates: start: 20040601
  3. CLONAZEPAM [Concomitant]
  4. BROMAZEPAM (BROMAZEPAM) [Concomitant]

REACTIONS (1)
  - NEUROLEPTIC MALIGNANT SYNDROME [None]
